FAERS Safety Report 12670027 (Version 4)
Quarter: 2016Q4

REPORT INFORMATION
  Report Type: Spontaneous
  Country: US (occurrence: US)
  Receive Date: 20160821
  Receipt Date: 20161221
  Transmission Date: 20170207
  Serious: No
  Sender: FDA-Public Use
  Company Number: US-009507513-1608USA007004

PATIENT
  Age: 78 Year
  Sex: Male
  Weight: 119.73 kg

DRUGS (32)
  1. CLOPIDOGREL [Concomitant]
     Active Substance: CLOPIDOGREL BISULFATE
     Indication: CORONARY ARTERY DISEASE
     Dosage: 75 MG, QD
     Route: 048
     Dates: start: 20030106
  2. CYMBALTA [Concomitant]
     Active Substance: DULOXETINE HYDROCHLORIDE
     Indication: NEUROPATHY PERIPHERAL
     Dosage: 60 MG, QD
     Route: 048
     Dates: start: 2009
  3. CARVEDILOL. [Concomitant]
     Active Substance: CARVEDILOL
     Indication: HYPERTENSION
  4. CYANOCOBALAMIN. [Concomitant]
     Active Substance: CYANOCOBALAMIN
     Indication: ROUTINE HEALTH MAINTENANCE
     Dosage: 1000 MICROGRAM, QD
     Route: 048
     Dates: start: 2015
  5. ALLOPURINOL. [Concomitant]
     Active Substance: ALLOPURINOL
     Indication: GOUT
     Dosage: 100 MG, QD
     Route: 048
     Dates: start: 2003
  6. XARELTO [Concomitant]
     Active Substance: RIVAROXABAN
     Indication: ATRIAL FIBRILLATION
     Dosage: 20 MG, QPM (QHS)
     Route: 048
     Dates: start: 2014
  7. CENTURY SENIOR VITAMINS [Concomitant]
     Indication: ROUTINE HEALTH MAINTENANCE
     Dosage: 1 TABLET, QD
     Route: 048
     Dates: start: 2004
  8. DEXAMETHASONE. [Suspect]
     Active Substance: DEXAMETHASONE
     Indication: PLASMA CELL MYELOMA
     Dosage: 4 MG, QD
     Route: 048
     Dates: start: 20160628, end: 20161105
  9. REVLIMID [Suspect]
     Active Substance: LENALIDOMIDE
     Indication: PLASMA CELL MYELOMA
     Dosage: 25 MG, QD
     Route: 048
     Dates: start: 20160628, end: 20160718
  10. REVLIMID [Suspect]
     Active Substance: LENALIDOMIDE
     Dosage: 25 MG, QD
     Route: 048
     Dates: start: 20160726, end: 20161105
  11. DAPSONE. [Concomitant]
     Active Substance: DAPSONE
     Indication: PROPHYLAXIS
     Dosage: 50 MG, BID
     Route: 048
     Dates: start: 20160628, end: 20161105
  12. EPLERENONE. [Concomitant]
     Active Substance: EPLERENONE
     Indication: HYPERTENSION
     Dosage: 25 MG, QD
     Route: 048
     Dates: start: 2004
  13. FENOFIBRATE. [Concomitant]
     Active Substance: FENOFIBRATE
     Indication: CORONARY ARTERY DISEASE
     Dosage: 160 MG, QD
     Route: 048
     Dates: start: 2004
  14. HUMALOG [Concomitant]
     Active Substance: INSULIN LISPRO
     Indication: TYPE 2 DIABETES MELLITUS
     Dosage: SSCALE IU, PRN
     Route: 058
     Dates: start: 2008
  15. LISINOPRIL. [Concomitant]
     Active Substance: LISINOPRIL
     Indication: CORONARY ARTERY DISEASE
     Dosage: 20 MG, BID
     Route: 048
     Dates: start: 2002, end: 20160804
  16. LANTUS [Concomitant]
     Active Substance: INSULIN GLARGINE
     Indication: TYPE 2 DIABETES MELLITUS
     Dosage: 38 IU, QPM (QHS)
     Route: 058
     Dates: start: 1996
  17. METFORMIN [Concomitant]
     Active Substance: METFORMIN HYDROCHLORIDE
     Indication: DIABETES MELLITUS
     Dosage: 500 MG, BID
     Route: 048
     Dates: start: 20160317
  18. METFORMIN [Concomitant]
     Active Substance: METFORMIN HYDROCHLORIDE
     Dosage: 500 MG, QD (QHS)
     Route: 048
     Dates: start: 2002, end: 20160317
  19. HYDROCODONE [Concomitant]
     Active Substance: HYDROCODONE
     Indication: BACK PAIN
     Dosage: 5-325 MG, PRN
     Route: 048
     Dates: start: 2011
  20. POTASSIUM CHLORIDE. [Concomitant]
     Active Substance: POTASSIUM CHLORIDE
     Indication: HYPOKALAEMIA
     Dosage: 20 MEQ, BID
     Route: 048
     Dates: start: 2004
  21. MAGNESIUM (UNSPECIFIED) [Concomitant]
     Active Substance: MAGNESIUM
     Indication: MUSCLE SPASMS
     Dosage: 400 MG, POI
     Route: 048
     Dates: start: 201610
  22. FUROSEMIDE. [Concomitant]
     Active Substance: FUROSEMIDE
     Indication: HYPERTENSION
     Dosage: 80 MG, BID
     Route: 048
     Dates: start: 2004
  23. LISINOPRIL. [Concomitant]
     Active Substance: LISINOPRIL
     Dosage: 5 MG, QD
     Route: 048
     Dates: start: 20161109
  24. DULAGLUTIDE. [Concomitant]
     Active Substance: DULAGLUTIDE
     Indication: DIABETES MELLITUS
     Dosage: 0.75 MG, WEEKLY
     Route: 058
     Dates: start: 20160320
  25. ACYCLOVIR. [Concomitant]
     Active Substance: ACYCLOVIR
     Indication: PROPHYLAXIS
     Dosage: 400 MG, BID
     Route: 048
     Dates: start: 20160628, end: 20161105
  26. LISINOPRIL. [Concomitant]
     Active Substance: LISINOPRIL
     Indication: HYPERTENSION
     Dosage: 20 MG, QD
     Route: 048
     Dates: start: 20160805, end: 20160808
  27. TIKOSYN [Concomitant]
     Active Substance: DOFETILIDE
     Indication: ATRIAL FIBRILLATION
     Dosage: 500 MICROGRAM, BID
     Route: 048
     Dates: start: 2012
  28. SCHIFF MEGARED OMEGA-3 KRILL OIL [Concomitant]
     Indication: HYPERLIPIDAEMIA
     Dosage: 1 CAPSULE, QPM (QHS)
     Route: 048
     Dates: start: 2014
  29. TYLENOL [Concomitant]
     Active Substance: ACETAMINOPHEN
     Indication: BACK PAIN
     Dosage: 500 MG, PRN
     Route: 048
     Dates: start: 2013
  30. CARVEDILOL. [Concomitant]
     Active Substance: CARVEDILOL
     Indication: CORONARY ARTERY DISEASE
     Dosage: 12.5 MG, BID
     Route: 048
     Dates: start: 20120503
  31. OMEPRAZOLE. [Concomitant]
     Active Substance: OMEPRAZOLE
     Indication: GASTROOESOPHAGEAL REFLUX DISEASE
     Dosage: 40 MG, QD
     Route: 048
     Dates: start: 2004
  32. METOLAZONE. [Concomitant]
     Active Substance: METOLAZONE
     Indication: OEDEMA PERIPHERAL
     Dosage: 2.5 MG, QD
     Route: 048
     Dates: start: 20161013, end: 20161105

REACTIONS (6)
  - Oropharyngeal pain [Unknown]
  - Flatulence [Unknown]
  - Lethargy [Unknown]
  - Ageusia [Unknown]
  - Dizziness [Unknown]
  - Dyspnoea [Unknown]

NARRATIVE: CASE EVENT DATE: 20160630
